FAERS Safety Report 13891634 (Version 1)
Quarter: 2017Q3

REPORT INFORMATION
  Report Type: Spontaneous
  Country: FR (occurrence: FR)
  Receive Date: 20170822
  Receipt Date: 20170822
  Transmission Date: 20171127
  Serious: Yes (Other)
  Sender: FDA-Public Use
  Company Number: FR-PFIZER INC-2017357757

PATIENT
  Age: 72 Year
  Sex: Male

DRUGS (10)
  1. OMEPRAZOLE. [Concomitant]
     Active Substance: OMEPRAZOLE
  2. LEVOTHYROX [Concomitant]
     Active Substance: LEVOTHYROXINE
  3. ZOPICLONE [Concomitant]
     Active Substance: ZOPICLONE
  4. TEMODAL [Suspect]
     Active Substance: TEMOZOLOMIDE
     Dosage: UNK
     Route: 048
     Dates: start: 20170613
  5. KEPPRA [Suspect]
     Active Substance: LEVETIRACETAM
     Indication: ASTROCYTOMA
     Dosage: UNK
     Route: 048
     Dates: start: 201704
  6. TEMODAL [Suspect]
     Active Substance: TEMOZOLOMIDE
     Indication: ASTROCYTOMA
     Dosage: 750 MG, EVERY 4 WEEKS
     Route: 048
     Dates: start: 201704
  7. SANMIGRAN [Concomitant]
     Active Substance: PIZOTYLINE MALEATE
  8. BI-TILDIEM [Concomitant]
     Active Substance: DILTIAZEM
  9. MEDROL [Suspect]
     Active Substance: METHYLPREDNISOLONE
     Indication: ASTROCYTOMA
     Dosage: 24 MG, 1X/DAY
     Route: 048
     Dates: start: 201704
  10. ELIQUIS [Concomitant]
     Active Substance: APIXABAN

REACTIONS (2)
  - Purpura [Not Recovered/Not Resolved]
  - Thrombocytopenia [Unknown]

NARRATIVE: CASE EVENT DATE: 201706
